FAERS Safety Report 4350164-3 (Version None)
Quarter: 2004Q2

REPORT INFORMATION
  Report Type: 
  Country: None (occurrence: None)
  Receive Date: 20040428
  Receipt Date: 20040428
  Transmission Date: 20050107
  Serious: Yes (Hospitalization)
  Sender: FDA-Public Use
  Company Number: None

PATIENT
  Age: 81 Year
  Sex: Male
  Weight: 85.2762 kg

DRUGS (14)
  1. FUROSEMIDE [Suspect]
     Indication: CARDIAC FAILURE CONGESTIVE
     Dates: start: 20030528, end: 20040214
  2. METOLAZONE [Suspect]
     Indication: CARDIAC FAILURE CONGESTIVE
     Dates: start: 20031231, end: 20040214
  3. ENALAPRIL 2.5 MG PO DAILY 1/5/04-2/14/04 [Suspect]
     Indication: CARDIAC FAILURE CONGESTIVE
     Dates: start: 20040105, end: 20040214
  4. ACCU-CHEK COMFORT CV (GLUCOSE) TEST STRIP [Concomitant]
  5. ACETAMINOPHEN 300/ CODEINE [Concomitant]
  6. AMOXICILLIN 875/CLAV K [Concomitant]
  7. ENALAPRIL MALEATE [Concomitant]
  8. FINASTERIDE [Concomitant]
  9. FUROSEMIDE [Concomitant]
  10. GLYBURIDE [Concomitant]
  11. ISOSORBIDE MONONITRATE [Concomitant]
  12. METOLAZONE [Concomitant]
  13. METOPROLOL TARTRATE [Concomitant]
  14. SIMVASTATIN [Concomitant]

REACTIONS (1)
  - RENAL FAILURE ACUTE [None]
